FAERS Safety Report 6767886-7 (Version None)
Quarter: 2010Q2

REPORT INFORMATION
  Report Type: 
  Country: None (occurrence: None)
  Receive Date: 20100614
  Receipt Date: 20100614
  Transmission Date: 20101027
  Serious: Yes (Other)
  Sender: FDA-Public Use
  Company Number: None

PATIENT
  Age: 15 Month
  Sex: Male
  Weight: 9.0719 kg

DRUGS (2)
  1. CONCENTRATED MOTRIN INFANTS DROPS [Suspect]
     Indication: PYREXIA
     Dosage: 1 ML 4 HOURS PO
     Route: 048
     Dates: start: 20100224, end: 20100301
  2. CONCENTRATED TYLENOL INFANT DROPS [Suspect]
     Indication: PYREXIA
     Dosage: 1.875 ML 6 HOURS PO
     Route: 048
     Dates: start: 20100224, end: 20100301

REACTIONS (6)
  - DEHYDRATION [None]
  - EAR INFECTION [None]
  - FEBRILE CONVULSION [None]
  - NO THERAPEUTIC RESPONSE [None]
  - PRODUCT QUALITY ISSUE [None]
  - PYREXIA [None]
